FAERS Safety Report 8040805-1 (Version None)
Quarter: 2012Q1

REPORT INFORMATION
  Report Type: 
  Country: None (occurrence: None)
  Receive Date: 20120112
  Receipt Date: 20120105
  Transmission Date: 20120608
  Serious: No
  Sender: FDA-Public Use
  Company Number: US-AMGEN-USASP2011068813

PATIENT
  Age: 52 Year
  Sex: Female

DRUGS (2)
  1. ENBREL [Suspect]
     Indication: PSORIATIC ARTHROPATHY
  2. ENBREL [Suspect]
     Indication: PSORIASIS
     Dosage: 50 MG, UNK
     Route: 058
     Dates: start: 20040506

REACTIONS (7)
  - STAPHYLOCOCCAL INFECTION [None]
  - PSORIASIS [None]
  - OEDEMA PERIPHERAL [None]
  - EYE DISORDER [None]
  - EYE SWELLING [None]
  - PSORIATIC ARTHROPATHY [None]
  - DRUG INEFFECTIVE [None]
